FAERS Safety Report 13084172 (Version 3)
Quarter: 2017Q1

REPORT INFORMATION
  Report Type: Report from Study
  Country: BE (occurrence: BE)
  Receive Date: 20170104
  Receipt Date: 20170202
  Transmission Date: 20170428
  Serious: Yes (Life-Threatening, Hospitalization)
  Sender: FDA-Public Use
  Company Number: BE-EISAI MEDICAL RESEARCH-E7080-01366-CLI-BE

PATIENT
  Age: 56 Year
  Sex: Male
  Weight: 78 kg

DRUGS (12)
  1. AMLOL [Concomitant]
  2. ALPRAZOLAM. [Concomitant]
     Active Substance: ALPRAZOLAM
  3. L THYROXINE [Concomitant]
     Active Substance: LEVOTHYROXINE SODIUM
  4. ASAFLOW [Concomitant]
     Active Substance: ASPIRIN
  5. LENVATINIB [Suspect]
     Active Substance: LENVATINIB
     Indication: THYROID CANCER
     Route: 048
     Dates: start: 20120530
  6. ZESTRIL [Concomitant]
     Active Substance: LISINOPRIL
  7. TASECTAN [Concomitant]
     Active Substance: GELATIN
  8. IMODIUM [Concomitant]
     Active Substance: LOPERAMIDE HYDROCHLORIDE
  9. BROMAZEPAM [Concomitant]
     Active Substance: BROMAZEPAM
  10. DAFALGAN [Concomitant]
     Active Substance: ACETAMINOPHEN
  11. TENORMIN [Concomitant]
     Active Substance: ATENOLOL
  12. OMEPRAZOLE. [Concomitant]
     Active Substance: OMEPRAZOLE

REACTIONS (2)
  - Acute myocardial infarction [Recovered/Resolved]
  - Pancreatitis [Recovered/Resolved]

NARRATIVE: CASE EVENT DATE: 20130910
